FAERS Safety Report 6184779-7 (Version None)
Quarter: 2009Q2

REPORT INFORMATION
  Report Type: 
  Country: None (occurrence: None)
  Receive Date: 20090508
  Receipt Date: 20090430
  Transmission Date: 20091009
  Serious: Yes (Hospitalization, Other)
  Sender: FDA-Public Use
  Company Number: US-PURDUE-USA_2007_0028995

PATIENT
  Sex: Male

DRUGS (4)
  1. ACYCLOVIR [Concomitant]
     Dosage: 400 MG, SEE TEXT
  2. ATIVAN [Suspect]
     Indication: DRUG USE FOR UNKNOWN INDICATION
     Dosage: 1 MG, BID
  3. ATIVAN [Suspect]
  4. OXYCONTIN [Suspect]
     Indication: INJURY
     Dosage: 40 MG, BID
     Dates: start: 20060101, end: 20060921

REACTIONS (12)
  - ANXIETY [None]
  - DELIRIUM [None]
  - DELUSIONAL DISORDER, UNSPECIFIED TYPE [None]
  - DEPRESSION [None]
  - DRUG ABUSE [None]
  - DRUG DEPENDENCE [None]
  - DRUG WITHDRAWAL SYNDROME [None]
  - OBSESSIVE-COMPULSIVE DISORDER [None]
  - OVERDOSE [None]
  - PAIN [None]
  - PARANOIA [None]
  - RASH PRURITIC [None]
